FAERS Safety Report 19005105 (Version 1)
Quarter: 2021Q1

REPORT INFORMATION
  Report Type: Spontaneous
  Country: US (occurrence: US)
  Receive Date: 20210312
  Receipt Date: 20210312
  Transmission Date: 20210420
  Serious: Yes (Other)
  Sender: FDA-Public Use
  Company Number: US-ORGANON-O2103USA001395

PATIENT
  Sex: Female
  Weight: 129.27 kg

DRUGS (1)
  1. NEXPLANON [Suspect]
     Active Substance: ETONOGESTREL
     Dosage: 1IMPLANT, LEFT ARM
     Route: 059
     Dates: start: 20201210

REACTIONS (1)
  - Device dislocation [Not Recovered/Not Resolved]
